FAERS Safety Report 4362920-6 (Version None)
Quarter: 2004Q2

REPORT INFORMATION
  Report Type: 
  Country: None (occurrence: None)
  Receive Date: 20040518
  Receipt Date: 20040405
  Transmission Date: 20050107
  Serious: Yes (Death, Hospitalization, Disabling)
  Sender: FDA-Public Use
  Company Number: 04P-083-0247673-00

PATIENT
  Age: 63 Year
  Sex: Male
  Weight: 65 kg

DRUGS (9)
  1. HUMIRA (ADALIMUMAB) (ADALIMUMAB) [Suspect]
     Indication: RHEUMATOID ARTHRITIS
     Dosage: 40 MG, 1 IN 2 WK, SUBCUTANEOUS
     Route: 058
     Dates: start: 20030702, end: 20031001
  2. METHOTREXATE [Concomitant]
  3. METHYLPREDNISOLONE [Concomitant]
  4. AMLODIPINE BESYLATE [Concomitant]
  5. FOSINOPRIL SODIUM [Concomitant]
  6. OMEPRAZOLE [Concomitant]
  7. LORAZEPAM [Concomitant]
  8. DEVEGIL [Concomitant]
  9. LEFLUNOMIDE [Concomitant]

REACTIONS (12)
  - ATRIOVENTRICULAR BLOCK [None]
  - ATROPHY [None]
  - BRADYCARDIA [None]
  - BRONCHOPNEUMONIA [None]
  - COMA [None]
  - DISLOCATION OF VERTEBRA [None]
  - EMPHYSEMA [None]
  - HYPOTENSION [None]
  - POST PROCEDURAL COMPLICATION [None]
  - RENAL FAILURE [None]
  - RESPIRATORY FAILURE [None]
  - SINUS TACHYCARDIA [None]
